FAERS Safety Report 5415026-9 (Version None)
Quarter: 2007Q3

REPORT INFORMATION
  Report Type: 
  Country: None (occurrence: None)
  Receive Date: 20070814
  Receipt Date: 20070814
  Transmission Date: 20080115
  Serious: Yes (Hospitalization)
  Sender: FDA-Public Use
  Company Number: None

PATIENT
  Age: 40 Year
  Sex: Male
  Weight: 56 kg

DRUGS (16)
  1. MORPHINE SULFATE [Suspect]
     Indication: PROCEDURAL PAIN
     Dosage: 15MG BID PO
     Route: 048
     Dates: start: 20070723, end: 20070729
  2. AMLODIPINE [Concomitant]
  3. CEFTRIAXONE [Concomitant]
  4. DIPHENHYDRAMINE HCL [Concomitant]
  5. DOCUSATE [Concomitant]
  6. NEXIUM [Concomitant]
  7. FERROUS SULFATE [Concomitant]
  8. HEPARIN [Concomitant]
  9. LABETALOL HCL [Concomitant]
  10. LINEZOLID [Concomitant]
  11. HYDROMORPHONE HCL [Concomitant]
  12. MORPHINE [Concomitant]
  13. PROMETHAZINE [Concomitant]
  14. ROSUVASTATIN [Concomitant]
  15. NEPHRO-VITE [Concomitant]
  16. SEVELAMER [Concomitant]

REACTIONS (2)
  - HALLUCINATION [None]
  - INADEQUATE ANALGESIA [None]
